FAERS Safety Report 9695475 (Version 1)
Quarter: 2013Q4

REPORT INFORMATION
  Report Type: Spontaneous
  Country: CA (occurrence: CA)
  Receive Date: 20131119
  Receipt Date: 20131119
  Transmission Date: 20140711
  Serious: Yes (Other)
  Sender: FDA-Public Use
  Company Number: CA-ASTRAZENECA-2013SE83309

PATIENT
  Age: 59 Year
  Sex: Female
  Weight: 78.5 kg

DRUGS (7)
  1. CRESTOR [Suspect]
     Route: 048
  2. CALCIUM [Concomitant]
  3. CELEBREX [Concomitant]
  4. CLIMARA [Concomitant]
     Dosage: 50
  5. MULTIVITAMINS [Concomitant]
  6. PREMARIN VAGINAL CREAM [Concomitant]
     Route: 067
  7. VITAMIN D [Concomitant]

REACTIONS (10)
  - Abasia [Recovered/Resolved]
  - Chromaturia [Recovered/Resolved]
  - Diarrhoea [Recovered/Resolved]
  - Faeces discoloured [Recovered/Resolved]
  - Dysstasia [Recovered/Resolved]
  - Hot flush [Recovered/Resolved]
  - Muscle spasms [Recovered/Resolved]
  - Abdominal discomfort [Recovered/Resolved]
  - Muscle tightness [Recovered/Resolved]
  - Pain in extremity [Recovered/Resolved]
